FAERS Safety Report 13144725 (Version 2)
Quarter: 2017Q1

REPORT INFORMATION
  Report Type: Spontaneous
  Country: ES (occurrence: ES)
  Receive Date: 20170124
  Receipt Date: 20170126
  Transmission Date: 20170428
  Serious: Yes (Hospitalization, Other)
  Sender: FDA-Public Use
  Company Number: ES-PFM-2017-00294

PATIENT
  Age: 5 Month
  Sex: Female

DRUGS (2)
  1. HEMANGIOL [Suspect]
     Active Substance: PROPRANOLOL HYDROCHLORIDE
     Indication: INFANTILE HAEMANGIOMA
     Dosage: 1 MG/KG, BID (2/DAY)
     Route: 048
     Dates: start: 20161212, end: 20161220
  2. HEMANGIOL [Suspect]
     Active Substance: PROPRANOLOL HYDROCHLORIDE
     Dosage: 2MG/KG/DAY
     Route: 048
     Dates: start: 20161220, end: 20161221

REACTIONS (4)
  - Sleep disorder [Recovered/Resolved]
  - Petit mal epilepsy [Recovered/Resolved]
  - Drug administered to patient of inappropriate age [Unknown]
  - Off label use [Unknown]

NARRATIVE: CASE EVENT DATE: 20161212
